FAERS Safety Report 5787093-4 (Version None)
Quarter: 2008Q2

REPORT INFORMATION
  Report Type: 
  Country: None (occurrence: None)
  Receive Date: 20080623
  Receipt Date: 20080623
  Transmission Date: 20081010
  Serious: Yes (Disabling)
  Sender: FDA-Public Use
  Company Number: None

PATIENT
  Age: 63 Year
  Sex: Female
  Weight: 115.6672 kg

DRUGS (1)
  1. TOPAMAX [Suspect]
     Indication: MIGRAINE PROPHYLAXIS
     Dosage: 100 MG 1 PILL AT BEDTIME PO
     Route: 048
     Dates: start: 20080215, end: 20080515

REACTIONS (3)
  - CATARACT [None]
  - HALO VISION [None]
  - PHARMACEUTICAL PRODUCT COMPLAINT [None]
